FAERS Safety Report 20202688 (Version 1)
Quarter: 2021Q4

REPORT INFORMATION
  Report Type: Spontaneous
  Country: US (occurrence: US)
  Receive Date: 20211218
  Receipt Date: 20211218
  Transmission Date: 20220303
  Serious: No
  Sender: FDA-Public Use
  Company Number: US-SA-SAC20211210001262

PATIENT
  Age: 64 Year
  Sex: Female

DRUGS (7)
  1. DUPIXENT [Suspect]
     Active Substance: DUPILUMAB
     Indication: Dermatitis atopic
     Dosage: 300 MG, QOW
     Route: 058
     Dates: start: 2020
  2. ATORVASTATIN CALCIUM [Concomitant]
     Active Substance: ATORVASTATIN CALCIUM
  3. CLIMARA [ESTRADIOL] [Concomitant]
  4. VENLAFAXINE HCL [Concomitant]
     Active Substance: VENLAFAXINE HYDROCHLORIDE
  5. METOPROLOL SUCCINATE [Concomitant]
     Active Substance: METOPROLOL SUCCINATE
  6. LISINOPRIL [Concomitant]
     Active Substance: LISINOPRIL
  7. RALOXIFENE [Concomitant]
     Active Substance: RALOXIFENE

REACTIONS (3)
  - Pruritus [Recovered/Resolved]
  - Stress [Recovered/Resolved]
  - Condition aggravated [Recovered/Resolved]
